FAERS Safety Report 16758715 (Version 1)
Quarter: 2019Q3

REPORT INFORMATION
  Report Type: Spontaneous
  Country: US (occurrence: US)
  Receive Date: 20190830
  Receipt Date: 20190830
  Transmission Date: 20191005
  Serious: No
  Sender: FDA-Public Use
  Company Number: US-GLAXOSMITHKLINE-US2019AMR154742

PATIENT
  Sex: Female

DRUGS (3)
  1. FLUTICASONE NASAL SPRAY [Suspect]
     Active Substance: FLUTICASONE
     Indication: MULTIPLE ALLERGIES
     Dosage: UNK UNK, QD
     Route: 065
     Dates: start: 20190522
  2. MONTELUKAST [Suspect]
     Active Substance: MONTELUKAST SODIUM
     Indication: MULTIPLE ALLERGIES
     Dosage: 1 DF, QD
     Route: 065
     Dates: start: 20190522
  3. AZELASTINE NASAL SPRAY [Suspect]
     Active Substance: AZELASTINE
     Indication: MULTIPLE ALLERGIES
     Dosage: UNK UNK, BID
     Route: 065
     Dates: start: 20190522

REACTIONS (4)
  - Cough [Unknown]
  - Throat irritation [Unknown]
  - Pharyngitis [Unknown]
  - Respiratory tract congestion [Unknown]
